FAERS Safety Report 5069055-8 (Version None)
Quarter: 2006Q3

REPORT INFORMATION
  Report Type: 
  Country: None (occurrence: None)
  Receive Date: 20060802
  Receipt Date: 20060628
  Transmission Date: 20061208
  Serious: Yes (Death)
  Sender: FDA-Public Use
  Company Number: JP-MERCK-0607USA00128

PATIENT
  Age: 81 Year
  Sex: Male

DRUGS (3)
  1. STROMECTOL [Suspect]
     Indication: ACARODERMATITIS
     Route: 048
     Dates: start: 20060620, end: 20060620
  2. CABASER [Concomitant]
     Indication: PARKINSON'S DISEASE
     Route: 048
  3. SINEMET [Concomitant]
     Indication: PARKINSON'S DISEASE
     Route: 048

REACTIONS (2)
  - GENERALISED OEDEMA [None]
  - RENAL IMPAIRMENT [None]
